FAERS Safety Report 5348110-9 (Version None)
Quarter: 2007Q2

REPORT INFORMATION
  Report Type: 
  Country: None (occurrence: None)
  Receive Date: 20070606
  Receipt Date: 20070529
  Transmission Date: 20071010
  Serious: Yes (Hospitalization)
  Sender: FDA-Public Use
  Company Number: US-AMGEN-US226721

PATIENT
  Sex: Male

DRUGS (1)
  1. ENBREL [Suspect]
     Indication: RHEUMATOID ARTHRITIS
     Route: 058
     Dates: end: 20070501

REACTIONS (6)
  - DEHYDRATION [None]
  - HYPERHIDROSIS [None]
  - MALAISE [None]
  - PANCYTOPENIA [None]
  - PYREXIA [None]
  - SINUSITIS [None]
